FAERS Safety Report 12183766 (Version 1)
Quarter: 2016Q1

REPORT INFORMATION
  Report Type: Spontaneous
  Country: None (occurrence: None)
  Receive Date: 20160315
  Receipt Date: 20160315
  Transmission Date: 20160526
  Serious: No
  Sender: FDA-Public Use
  Company Number: None

PATIENT
  Sex: Female

DRUGS (1)
  1. SYNVEXIA [Suspect]
     Active Substance: LIDOCAINE HYDROCHLORIDE\MENTHOL
     Indication: PAIN
     Route: 061
     Dates: start: 20151101

REACTIONS (2)
  - Application site reaction [None]
  - Incorrect drug administration duration [None]

NARRATIVE: CASE EVENT DATE: 20151201
